FAERS Safety Report 7537630-4 (Version None)
Quarter: 2011Q2

REPORT INFORMATION
  Report Type: 
  Country: None (occurrence: None)
  Receive Date: 20110609
  Receipt Date: 20070709
  Transmission Date: 20111010
  Serious: Yes (Other)
  Sender: FDA-Public Use
  Company Number: PHFR2007GB01784

PATIENT
  Sex: Female

DRUGS (2)
  1. CLOZAPINE [Suspect]
     Indication: SCHIZOPHRENIA
     Dosage: 600 MG, QD
     Route: 048
     Dates: start: 20000210
  2. ACYCLOVIR [Concomitant]
     Indication: HERPES ZOSTER
     Dosage: 800 MG, 5QD
     Route: 048

REACTIONS (1)
  - HERPES ZOSTER [None]
